FAERS Safety Report 9696136 (Version 2)
Quarter: 2013Q4

REPORT INFORMATION
  Report Type: Spontaneous
  Country: US (occurrence: None)
  Receive Date: 20131115
  Receipt Date: 20131121
  Transmission Date: 20140711
  Serious: Yes (Other)
  Sender: FDA-Public Use
  Company Number: 2013-US-002880

PATIENT
  Age: 53 Year
  Sex: Female

DRUGS (1)
  1. XYREM (SODIUM OXYBATE) ORAL SOLUTION, 500MG/ML [Suspect]
     Indication: NARCOLEPSY
     Route: 048
     Dates: start: 201111, end: 2012

REACTIONS (1)
  - Cholecystectomy [None]
